FAERS Safety Report 15251583 (Version 1)
Quarter: 2018Q3

REPORT INFORMATION
  Report Type: Spontaneous
  Country: US (occurrence: US)
  Receive Date: 20180717
  Receipt Date: 20180717
  Transmission Date: 20181010
  Serious: No
  Sender: FDA-Public Use
  Company Number: None

PATIENT
  Age: 75 Year
  Sex: Female
  Weight: 52.16 kg

DRUGS (12)
  1. THYROID MED. (SYNTHROID) [Concomitant]
  2. MAG. [Concomitant]
  3. B?COMP [Concomitant]
  4. JOINT COMPLEX [Concomitant]
  5. GLAUCOMA MED.LATANAPROST [Concomitant]
  6. HAIR DYE [Concomitant]
  7. CLARITIN [Concomitant]
     Active Substance: LORATADINE
  8. VITAMIN C [Concomitant]
     Active Substance: ASCORBIC ACID
  9. VITAMIN E [Concomitant]
     Active Substance: .ALPHA.-TOCOPHEROL
  10. VITAMIN D [Concomitant]
     Active Substance: CHOLECALCIFEROL
  11. ZYRTEC [Suspect]
     Active Substance: CETIRIZINE HYDROCHLORIDE
     Indication: SEASONAL ALLERGY
     Dosage: ?          QUANTITY:10 MG MILLIGRAM(S);?
     Route: 048
     Dates: start: 20180605, end: 20180610
  12. CALCIUM [Concomitant]
     Active Substance: CALCIUM

REACTIONS (1)
  - Headache [None]

NARRATIVE: CASE EVENT DATE: 20180610
